FAERS Safety Report 23353372 (Version 1)
Quarter: 2023Q4

REPORT INFORMATION
  Report Type: Report from Study
  Country: IT (occurrence: IT)
  Receive Date: 20231231
  Receipt Date: 20231231
  Transmission Date: 20240109
  Serious: Yes (Hospitalization)
  Sender: FDA-Public Use
  Company Number: None

PATIENT
  Age: 87 Year

DRUGS (8)
  1. CLOPIDOGREL [Suspect]
     Active Substance: CLOPIDOGREL BISULFATE
     Indication: Product used for unknown indication
     Dosage: 75 MG/DIE
     Route: 048
     Dates: start: 20210101
  2. SIMVASTATIN [Concomitant]
     Active Substance: SIMVASTATIN
     Indication: Product used for unknown indication
     Dosage: 20 MG/DIE
     Route: 048
     Dates: start: 20210101
  3. LASIX [Concomitant]
     Active Substance: FUROSEMIDE
     Indication: Product used for unknown indication
     Dosage: 125 MG/DIE
     Route: 048
  4. POTASSIO CANRENOATO [Concomitant]
     Indication: Product used for unknown indication
     Dosage: 25 MG/DIE
     Route: 048
     Dates: start: 20210101
  5. FOLINA [Concomitant]
     Indication: Product used for unknown indication
     Dosage: 5 MG/DIE
     Route: 048
     Dates: start: 20210101
  6. PHENOBARBITAL [Concomitant]
     Active Substance: PHENOBARBITAL
     Indication: Product used for unknown indication
     Dosage: 100 MG/DIE
     Route: 048
     Dates: start: 20210101
  7. ASPIRIN [Suspect]
     Active Substance: ASPIRIN
     Indication: Product used for unknown indication
     Dosage: 100 MG/DAY
     Route: 048
     Dates: start: 20210101
  8. PANTOPRAZOLE SODIUM [Concomitant]
     Active Substance: PANTOPRAZOLE SODIUM
     Indication: Product used for unknown indication
     Dosage: 20 MG/DIE
     Route: 048
     Dates: start: 20210101

REACTIONS (1)
  - Subdural haemorrhage [Not Recovered/Not Resolved]

NARRATIVE: CASE EVENT DATE: 20220204
